FAERS Safety Report 25777914 (Version 1)
Quarter: 2025Q3

REPORT INFORMATION
  Report Type: Spontaneous
  Country: US (occurrence: US)
  Receive Date: 20250909
  Receipt Date: 20250909
  Transmission Date: 20251021
  Serious: Yes (Other)
  Sender: MYLAN
  Company Number: US-MYLANLABS-2025M1074841

PATIENT
  Age: 27 Year
  Sex: Male

DRUGS (9)
  1. METHOTREXATE [Suspect]
     Active Substance: METHOTREXATE
     Indication: Desmoplastic small round cell tumour
  2. DOXORUBICIN [Suspect]
     Active Substance: DOXORUBICIN
     Indication: Desmoplastic small round cell tumour
  3. DOXORUBICIN [Suspect]
     Active Substance: DOXORUBICIN
  4. ETOPOSIDE [Suspect]
     Active Substance: ETOPOSIDE
     Indication: Desmoplastic small round cell tumour
  5. VINBLASTINE [Suspect]
     Active Substance: VINBLASTINE
     Indication: Desmoplastic small round cell tumour
  6. CISPLATIN [Suspect]
     Active Substance: CISPLATIN
     Indication: Desmoplastic small round cell tumour
  7. PEMBROLIZUMAB [Suspect]
     Active Substance: PEMBROLIZUMAB
     Indication: Desmoplastic small round cell tumour
  8. VINCRISTINE [Suspect]
     Active Substance: VINCRISTINE
     Indication: Desmoplastic small round cell tumour
  9. IFOSFAMIDE [Suspect]
     Active Substance: IFOSFAMIDE
     Indication: Desmoplastic small round cell tumour

REACTIONS (2)
  - Disease progression [Unknown]
  - Drug ineffective [Unknown]
